FAERS Safety Report 9398849 (Version 1)
Quarter: 2013Q3

REPORT INFORMATION
  Report Type: Report from Study
  Country: US (occurrence: US)
  Receive Date: 20130712
  Receipt Date: 20130712
  Transmission Date: 20140515
  Serious: Yes (Hospitalization)
  Sender: FDA-Public Use
  Company Number: US-ACTELION-A-US2013-83958

PATIENT
  Age: 76 Year
  Sex: Female

DRUGS (20)
  1. TRACLEER [Suspect]
     Indication: PULMONARY ARTERIAL HYPERTENSION
     Dosage: 125 MG, UNK
     Route: 048
     Dates: start: 200311
  2. AMLODIPINE [Concomitant]
     Dosage: 10 MG, UNK
     Route: 048
  3. COREG [Concomitant]
     Dosage: 3.125 MG, BID
     Route: 048
  4. PREDNISONE [Concomitant]
     Dosage: 5 MG, UNK
     Route: 048
  5. CYMBALTA [Concomitant]
     Dosage: 60 MG, BID
     Route: 048
  6. VITAMIN D [Concomitant]
     Dosage: 2000 U, UNK
     Route: 048
  7. FEBUXOSTAT [Concomitant]
     Dosage: 40 MG, UNK
     Route: 048
  8. FLUTICASONE [Concomitant]
     Dosage: UNK U, UNK
     Route: 045
  9. SINGULAIR [Concomitant]
     Dosage: 10 MG, UNK
     Route: 048
  10. NOVOLOG [Concomitant]
     Dosage: 1 TO 12 U, TID
  11. LASIX [Concomitant]
     Dosage: 80 MG, UNK
     Route: 048
  12. LANTUS [Concomitant]
     Dosage: 30 U, QD
     Route: 048
  13. LEVOTHYROXINE [Concomitant]
     Dosage: 150 UNK, UNK
     Route: 048
  14. LIPITOR [Concomitant]
     Dosage: 40 MG, UNK
     Route: 048
  15. METOCLOPRAMIDE [Concomitant]
     Dosage: 5 MG, UNK
     Route: 048
  16. CLOTRIMAZOLE [Concomitant]
     Dosage: UNK UNK, BID
     Route: 061
  17. ADVAIR [Concomitant]
     Dosage: 2 PUFF, BID
  18. PANTOPRAZOLE [Concomitant]
     Dosage: 40 MG, BID
     Route: 048
  19. AZELASTINE [Concomitant]
     Dosage: 1 SPRAY, BID
     Route: 045
  20. SUCRALFATE [Concomitant]
     Dosage: 10 UNK, UNK

REACTIONS (17)
  - Middle ear effusion [Not Recovered/Not Resolved]
  - Leg amputation [Unknown]
  - Renal failure [Recovered/Resolved]
  - Blood urea increased [Unknown]
  - Pneumonia [Unknown]
  - Fatigue [Unknown]
  - Dyspnoea [Unknown]
  - Cough [Unknown]
  - Anaemia [Unknown]
  - Local swelling [Recovering/Resolving]
  - Viral infection [Unknown]
  - Infection [Not Recovered/Not Resolved]
  - Cardiac failure congestive [Recovering/Resolving]
  - Dysstasia [Recovering/Resolving]
  - Dry eye [Not Recovered/Not Resolved]
  - Arteriovenous malformation [Not Recovered/Not Resolved]
  - Staphylococcal infection [Recovered/Resolved]
